FAERS Safety Report 11710601 (Version 2)
Quarter: 2015Q4

REPORT INFORMATION
  Report Type: Spontaneous
  Country: US (occurrence: US)
  Receive Date: 20151104
  Receipt Date: 20151110
  Transmission Date: 20160304
  Serious: No
  Sender: FDA-Public Use
  Company Number: US-ELI_LILLY_AND_COMPANY-US201104006427

PATIENT
  Age: 62 Year
  Sex: Female

DRUGS (4)
  1. FORTEO [Suspect]
     Active Substance: TERIPARATIDE
     Dosage: 20 UG, QD
  2. FORTEO [Suspect]
     Active Substance: TERIPARATIDE
     Dosage: 20 UG, QD
     Route: 065
  3. FORTEO [Suspect]
     Active Substance: TERIPARATIDE
     Dosage: 20 UG, QD
     Route: 065
  4. FORTEO [Suspect]
     Active Substance: TERIPARATIDE
     Indication: OSTEOPOROSIS
     Dosage: 20 UG, QD

REACTIONS (8)
  - Injection site pain [Not Recovered/Not Resolved]
  - Upper limb fracture [Recovered/Resolved]
  - Injection site bruising [Unknown]
  - Muscle spasms [Unknown]
  - Injection site warmth [Unknown]
  - Fall [Unknown]
  - Injection site reaction [Unknown]
  - Injection site pruritus [Unknown]

NARRATIVE: CASE EVENT DATE: 201111
